FAERS Safety Report 8515416-1 (Version None)
Quarter: 2012Q3

REPORT INFORMATION
  Report Type: 
  Country: None (occurrence: None)
  Receive Date: 20120717
  Receipt Date: 20120706
  Transmission Date: 20120928
  Serious: Yes (Hospitalization, Other)
  Sender: FDA-Public Use
  Company Number: JP-VERTEX PHARMACEUTICALS INC.-AE-2012-010172

PATIENT
  Age: 64 Year
  Sex: Male

DRUGS (7)
  1. REBETOL [Concomitant]
     Route: 048
     Dates: start: 20120403
  2. PEG-INTRON [Concomitant]
     Indication: HEPATITIS C
     Route: 058
     Dates: start: 20120215, end: 20120410
  3. TELAVIC (TELAPREVIR) [Suspect]
     Indication: HEPATITIS C
     Route: 048
     Dates: start: 20120215, end: 20120416
  4. REBETOL [Concomitant]
     Route: 048
     Dates: start: 20120229
  5. PEG-INTRON [Concomitant]
     Route: 058
     Dates: start: 20120424
  6. TELAVIC (TELAPREVIR) [Suspect]
     Route: 048
     Dates: start: 20120417
  7. REBETOL [Concomitant]
     Indication: HEPATITIS C
     Route: 048
     Dates: start: 20120215, end: 20120228

REACTIONS (6)
  - ASCITES [None]
  - RENAL IMPAIRMENT [None]
  - CELLULITIS [None]
  - RASH [None]
  - ANAEMIA [None]
  - OEDEMA DUE TO HEPATIC DISEASE [None]
